FAERS Safety Report 18263597 (Version 7)
Quarter: 2020Q4

REPORT INFORMATION
  Report Type: Spontaneous
  Country: ES (occurrence: ES)
  Receive Date: 20200914
  Receipt Date: 20201015
  Transmission Date: 20210113
  Serious: Yes (Death, Life-Threatening, Hospitalization, Other)
  Sender: FDA-Public Use
  Company Number: ES-MYLANLABS-2020M1077486

PATIENT
  Age: 57 Year
  Sex: Female

DRUGS (14)
  1. GEFITINIB. [Interacting]
     Active Substance: GEFITINIB
     Indication: CHRONIC MYELOID LEUKAEMIA
     Dosage: UNK
     Route: 065
     Dates: start: 201610, end: 20170608
  2. REPAGLINIDE. [Concomitant]
     Active Substance: REPAGLINIDE
     Dosage: 1 DOSAGE FORM, Q8H
  3. GEFITINIB. [Interacting]
     Active Substance: GEFITINIB
     Indication: LUNG ADENOCARCINOMA STAGE IV
  4. IMATINIB. [Interacting]
     Active Substance: IMATINIB MESYLATE
     Indication: CHRONIC MYELOID LEUKAEMIA
     Dosage: 400 MILLIGRAM, QD
     Route: 048
     Dates: start: 20170413, end: 20170510
  5. BISOPROLOL [Concomitant]
     Active Substance: BISOPROLOL
     Dosage: 2.5 MILLIGRAM, QD
  6. IMATINIB. [Interacting]
     Active Substance: IMATINIB MESYLATE
     Dosage: UNK
     Route: 065
  7. GEFITINIB. [Interacting]
     Active Substance: GEFITINIB
     Indication: LUNG ADENOCARCINOMA
     Dosage: 250 MILLIGRAM, QD
     Route: 048
     Dates: start: 201610, end: 20170608
  8. IMATINIB TEVA [Interacting]
     Active Substance: IMATINIB
     Indication: CHRONIC MYELOID LEUKAEMIA
     Dosage: 400 MILLIGRAM, QD
     Route: 048
     Dates: start: 20170413, end: 20170510
  9. INSULIN GLARGINE [Concomitant]
     Active Substance: INSULIN GLARGINE
     Dosage: 28 INTERNATIONAL UNIT, QD
  10. IMATINIB. [Interacting]
     Active Substance: IMATINIB MESYLATE
     Indication: LUNG ADENOCARCINOMA
     Dosage: 300 MILLIGRAM, QD
     Route: 065
  11. IMATINIB. [Interacting]
     Active Substance: IMATINIB MESYLATE
     Dosage: 600 MG, UNKNOWN
     Route: 065
  12. ERLOTINIB [Suspect]
     Active Substance: ERLOTINIB
     Indication: CHRONIC MYELOID LEUKAEMIA
     Dosage: 100 MG, UNKNOWN
     Route: 065
  13. REPAGLINIDE. [Concomitant]
     Active Substance: REPAGLINIDE
     Dosage: UNK, Q8H
  14. BEMIPARIN [Concomitant]
     Active Substance: BEMIPARIN
     Dosage: 5000 INTERNATIONAL UNIT, QD

REACTIONS (7)
  - Gastrointestinal toxicity [Fatal]
  - Asthenia [Fatal]
  - Pancreatitis acute [Recovered/Resolved]
  - Off label use [Unknown]
  - Malignant neoplasm progression [Unknown]
  - Drug interaction [Unknown]
  - Product use in unapproved indication [Unknown]

NARRATIVE: CASE EVENT DATE: 20170608
